FAERS Safety Report 25964068 (Version 1)
Quarter: 2025Q4

REPORT INFORMATION
  Report Type: Spontaneous
  Country: US (occurrence: None)
  Receive Date: 20251026
  Receipt Date: 20251026
  Transmission Date: 20260117
  Serious: Yes (Hospitalization)
  Sender: FDA-CTU
  Company Number: None

PATIENT
  Sex: Male

DRUGS (1)
  1. IMATINIB MESYLATE [Suspect]
     Active Substance: IMATINIB MESYLATE
     Indication: Myelodysplastic syndrome
     Dosage: 200 MG DAILY ORAL ?
     Route: 048
     Dates: start: 20250213

REACTIONS (1)
  - Hospitalisation [None]
